FAERS Safety Report 13924002 (Version 1)
Quarter: 2017Q3

REPORT INFORMATION
  Report Type: Spontaneous
  Country: US (occurrence: None)
  Receive Date: 20170830
  Receipt Date: 20170830
  Transmission Date: 20171127
  Serious: No
  Sender: FDA-Public Use
  Company Number: None

PATIENT
  Age: 2 Year
  Sex: Male
  Weight: 10.3 kg

DRUGS (3)
  1. G-CSF (FILGRASTIM, AMGEN) [Suspect]
     Active Substance: FILGRASTIM
     Dates: end: 20170823
  2. FLUDARABINE PHOSPHATE. [Suspect]
     Active Substance: FLUDARABINE PHOSPHATE
     Dates: end: 20170813
  3. CYTARABINE. [Suspect]
     Active Substance: CYTARABINE
     Dates: end: 20170813

REACTIONS (4)
  - Blood culture positive [None]
  - Pyrexia [None]
  - Neutropenia [None]
  - Streptococcus test positive [None]

NARRATIVE: CASE EVENT DATE: 20170823
